FAERS Safety Report 9020653 (Version 1)
Quarter: 2013Q1

REPORT INFORMATION
  Report Type: Spontaneous
  Country: US (occurrence: US)
  Receive Date: 20130119
  Receipt Date: 20130119
  Transmission Date: 20140127
  Serious: No
  Sender: FDA-Public Use
  Company Number: US-ALLERGAN-1206571US

PATIENT
  Sex: Male

DRUGS (1)
  1. BOTOX? [Suspect]
     Indication: BLADDER OUTLET OBSTRUCTION
     Dosage: UNK
     Route: 030

REACTIONS (1)
  - Injection site pain [Recovered/Resolved]
